FAERS Safety Report 6787890-2 (Version None)
Quarter: 2010Q2

REPORT INFORMATION
  Report Type: 
  Country: None (occurrence: None)
  Receive Date: 20100623
  Receipt Date: 20071231
  Transmission Date: 20101027
  Serious: Yes (Hospitalization)
  Sender: FDA-Public Use
  Company Number: US-PFIZER INC-2007091046

PATIENT
  Sex: Female

DRUGS (1)
  1. VERAPAMIL HYDROCHLORIDE [Suspect]
     Route: 048

REACTIONS (3)
  - BLOOD PRESSURE ABNORMAL [None]
  - DYSPNOEA [None]
  - PRESYNCOPE [None]
